FAERS Safety Report 9850917 (Version 1)
Quarter: 2014Q1

REPORT INFORMATION
  Report Type: Spontaneous
  Country: FR (occurrence: None)
  Receive Date: 20140124
  Receipt Date: 20140124
  Transmission Date: 20141002
  Serious: Yes (Other)
  Sender: FDA-Public Use
  Company Number: FR-ZYDUS-002478

PATIENT
  Age: 20 Year
  Sex: Female

DRUGS (1)
  1. TRAMADOL (TRAMADOL) [Suspect]

REACTIONS (4)
  - Intentional overdose [None]
  - Neurological symptom [None]
  - Psychiatric symptom [None]
  - Dyspepsia [None]
